FAERS Safety Report 7190511-0 (Version None)
Quarter: 2010Q4

REPORT INFORMATION
  Report Type: 
  Country: None (occurrence: None)
  Receive Date: 20101223
  Receipt Date: 20101216
  Transmission Date: 20110411
  Serious: Yes (Life-Threatening)
  Sender: FDA-Public Use
  Company Number: US-ELI_LILLY_AND_COMPANY-US201012004476

PATIENT
  Sex: Female

DRUGS (2)
  1. BYETTA [Suspect]
     Indication: TYPE 2 DIABETES MELLITUS
     Dosage: 1 D/F, UNKNOWN
     Route: 058
  2. BYETTA [Suspect]
     Dosage: 5 UG, 2/D
     Route: 058

REACTIONS (1)
  - VENTRICULAR TACHYCARDIA [None]
